FAERS Safety Report 4438983-6 (Version None)
Quarter: 2004Q3

REPORT INFORMATION
  Report Type: 
  Country: None (occurrence: None)
  Receive Date: 20040830
  Receipt Date: 20040816
  Transmission Date: 20050211
  Serious: Yes (Hospitalization)
  Sender: FDA-Public Use
  Company Number: 2004027822

PATIENT
  Age: 73 Year
  Sex: Female

DRUGS (11)
  1. AMLODIPINE [Suspect]
     Indication: HYPERTENSION
     Dosage: 5 MG (5MG, 1 IN 1 D), ORAL
     Route: 048
     Dates: start: 20031024, end: 20031108
  2. SYMBICORT TURBUHALER ^DRACO^ (BUDESONIDE, FORMOTEROL FUMARATE [Suspect]
     Indication: ASTHMA
     Dosage: 320 MCG , INHALATION
     Route: 055
     Dates: start: 20030320
  3. NORMACOL (FRANGULA EXTRACT, STERCULIA) [Concomitant]
  4. AZELASTINE HYDROCHLORIDE (AZELASTINE HYDROCHLORIDE) [Concomitant]
  5. APOREX (DEXTROPROPOXYPHENE HYDROCHLORIDE, PARACETAMOL) [Concomitant]
  6. NAVISPARE (AMILORIDE HYDROCHLORIDE, CYCLOPENTHIAZIDE) [Concomitant]
  7. CODEINE PHOSPHATE (CODEINE PHOSPHATE) [Concomitant]
  8. PERINDOPRIL (PERINDOPRIL) [Concomitant]
  9. PROCHLORPERAZINE [Concomitant]
  10. CYCLOPENTHIAZIDE (CYCLOPENTHIAZIDE) [Concomitant]
  11. AMILORIDE (AMLORIDE) [Concomitant]

REACTIONS (3)
  - ADVERSE DRUG REACTION [None]
  - DIZZINESS [None]
  - HEADACHE [None]
